FAERS Safety Report 20943018 (Version 1)
Quarter: 2022Q2

REPORT INFORMATION
  Report Type: Spontaneous
  Country: JP (occurrence: JP)
  Receive Date: 20220610
  Receipt Date: 20220610
  Transmission Date: 20220720
  Serious: Yes (Other)
  Sender: FDA-Public Use
  Company Number: JP-CELLTRION INC.-2022JP008607

PATIENT

DRUGS (7)
  1. INFLIXIMAB [Suspect]
     Active Substance: INFLIXIMAB
     Indication: COVID-19
     Dosage: 5 MILLIGRAM/KILOGRAM, QD (DAY 8)
     Route: 042
  2. INFLIXIMAB [Suspect]
     Active Substance: INFLIXIMAB
     Indication: Multisystem inflammatory syndrome in children
  3. DIPYRIDAMOLE [Concomitant]
     Active Substance: DIPYRIDAMOLE
     Indication: Kawasaki^s disease
     Dosage: 75 MG/DAY
  4. PREDNISOLONE [Concomitant]
     Active Substance: PREDNISOLONE
     Indication: Kawasaki^s disease
     Dosage: 60 MG/ DAY
  5. PREDNISOLONE [Concomitant]
     Active Substance: PREDNISOLONE
     Dosage: TAPERED ON DAY 13
  6. HUMAN IMMUNOGLOBULIN G [Concomitant]
     Active Substance: HUMAN IMMUNOGLOBULIN G
     Indication: Kawasaki^s disease
     Dosage: 2 GRAM PER KILOGRAM
  7. UNSPECIFIED INGREDIENT [Concomitant]
     Active Substance: UNSPECIFIED INGREDIENT
     Indication: Kawasaki^s disease
     Dosage: LMWH; 75 IU/KG/DAY

REACTIONS (4)
  - COVID-19 [Recovered/Resolved]
  - Multisystem inflammatory syndrome in children [Unknown]
  - Off label use [Unknown]
  - Drug effective for unapproved indication [Unknown]
